FAERS Safety Report 8006595-3 (Version None)
Quarter: 2011Q4

REPORT INFORMATION
  Report Type: 
  Country: None (occurrence: None)
  Receive Date: 20111227
  Receipt Date: 20110923
  Transmission Date: 20120403
  Serious: No
  Sender: FDA-Public Use
  Company Number: US-BAYER-2011-091028

PATIENT

DRUGS (1)
  1. AVELOX [Suspect]
     Dosage: UNK
     Route: 042
     Dates: start: 20110923, end: 20110923

REACTIONS (1)
  - INFUSION SITE EXTRAVASATION [None]
